FAERS Safety Report 6822443-9 (Version None)
Quarter: 2010Q3

REPORT INFORMATION
  Report Type: 
  Country: None (occurrence: None)
  Receive Date: 20100707
  Receipt Date: 20100707
  Transmission Date: 20110219
  Serious: Yes (Life-Threatening, Hospitalization)
  Sender: FDA-Public Use
  Company Number: None

PATIENT
  Age: 86 Year
  Sex: Male

DRUGS (1)
  1. CIPROFLOXACIN [Suspect]
     Dosage: 250 MG BID PO
     Route: 048
     Dates: start: 20100516, end: 20100518

REACTIONS (1)
  - GRAND MAL CONVULSION [None]
